FAERS Safety Report 15645125 (Version 13)
Quarter: 2019Q3

REPORT INFORMATION
  Report Type: Report from Study
  Country: JP (occurrence: JP)
  Receive Date: 20181121
  Receipt Date: 20190805
  Transmission Date: 20191004
  Serious: Yes (Hospitalization)
  Sender: FDA-Public Use
  Company Number: JP-EISAI MEDICAL RESEARCH-EC-2018-048069

PATIENT
  Age: 55 Year
  Sex: Female
  Weight: 70.5 kg

DRUGS (24)
  1. LENVATINIB [Suspect]
     Active Substance: LENVATINIB
     Indication: ENDOMETRIAL CANCER
     Route: 048
     Dates: start: 20180926, end: 20181118
  2. CALONAL [Concomitant]
     Active Substance: ACETAMINOPHEN
     Dates: start: 20180903
  3. NARURAPID [Concomitant]
     Active Substance: HYDROMORPHONE HYDROCHLORIDE
     Dates: start: 20180910
  4. BESOFTEN [Concomitant]
     Active Substance: PENTOSAN POLYSULFATE SODIUM
     Route: 061
     Dates: start: 20181029
  5. SODIUM PICOSULFATE [Concomitant]
     Active Substance: SODIUM PICOSULFATE
     Dates: start: 20181030
  6. LENVATINIB [Suspect]
     Active Substance: LENVATINIB
     Dosage: STARTING DOSE AT 14 MG, QD; FLUCTUATED DOSES14 MG, QD; FLUCTUATED DOSES;
     Route: 048
     Dates: start: 20181122
  7. REBAMIPIDE [Concomitant]
     Active Substance: REBAMIPIDE
     Dates: start: 20170821
  8. PEMBROLIZUMAB. [Suspect]
     Active Substance: PEMBROLIZUMAB
     Indication: ENDOMETRIAL CANCER
     Route: 041
     Dates: start: 20180926, end: 20181016
  9. MAGNESIUM OXIDE. [Concomitant]
     Active Substance: MAGNESIUM OXIDE
     Dates: start: 20150825
  10. NARUSUS [Concomitant]
     Active Substance: HYDROMORPHONE HYDROCHLORIDE
     Dates: start: 20180903
  11. AZILVA [Concomitant]
     Active Substance: AZILSARTAN KAMEDOXOMIL
     Dates: start: 20181010
  12. AMLODIPINE [Concomitant]
     Active Substance: AMLODIPINE BESYLATE
     Dates: start: 20181011
  13. PEMBROLIZUMAB. [Suspect]
     Active Substance: PEMBROLIZUMAB
     Route: 041
     Dates: start: 20181126
  14. CARBOCYSTEINE [Concomitant]
     Active Substance: CARBOCYSTEINE
     Dates: start: 200101
  15. METOCLOPRAMIDE. [Concomitant]
     Active Substance: METOCLOPRAMIDE
     Dates: start: 20180929
  16. MEQUITAZINE [Concomitant]
     Active Substance: MEQUITAZINE
     Dates: start: 200101
  17. EPINASTINE HYDROCHLORIDE. [Concomitant]
     Active Substance: EPINASTINE HYDROCHLORIDE
     Dates: start: 200101
  18. LOXOPROFEN SODIUM [Concomitant]
     Active Substance: LOXOPROFEN SODIUM
     Dates: start: 201808
  19. SYMPROIC [Concomitant]
     Active Substance: NALDEMEDINE
     Dates: start: 20180903
  20. LYRICA [Concomitant]
     Active Substance: PREGABALIN
     Dates: start: 20171108
  21. LOCOID [Concomitant]
     Active Substance: HYDROCORTISONE BUTYRATE
     Dates: start: 20181017
  22. PEMBROLIZUMAB. [Suspect]
     Active Substance: PEMBROLIZUMAB
     Route: 041
     Dates: start: 20181105, end: 20181105
  23. PRANLUKAST [Concomitant]
     Active Substance: PRANLUKAST
     Dates: start: 200101
  24. THYRADIN S [Concomitant]
     Active Substance: LEVOTHYROXINE SODIUM
     Dates: start: 20181015, end: 20181127

REACTIONS (1)
  - Decreased appetite [Not Recovered/Not Resolved]

NARRATIVE: CASE EVENT DATE: 20181118
